FAERS Safety Report 4830712-7 (Version None)
Quarter: 2005Q4

REPORT INFORMATION
  Report Type: 
  Country: None (occurrence: None)
  Receive Date: 20051114
  Receipt Date: 20051102
  Transmission Date: 20060501
  Serious: Yes (Other)
  Sender: FDA-Public Use
  Company Number: HQWYE357702NOV05

PATIENT

DRUGS (1)
  1. RIFUN (PANTOPRAZOLE, TABLET, DELAYED RELEASE) [Suspect]
     Dosage: ORAL
     Route: 048

REACTIONS (1)
  - RENAL NEOPLASM [None]
